FAERS Safety Report 8766280 (Version 1)
Quarter: 2012Q4

REPORT INFORMATION
  Report Type: 
  Country: US (occurrence: US)
  Receive Date: 20120904
  Receipt Date: 20120904
  Transmission Date: 20130627
  Serious: Yes (Death, Hospitalization, Other)
  Sender: FDA-Public Use
  Company Number: US-ROCHE-629985

PATIENT

DRUGS (4)
  1. MABTHERA [Suspect]
     Indication: CHRONIC LYMPHOCYTIC LEUKAEMIA
     Dosage: GIVEN ON DAY 1
     Route: 065
  2. CYCLOPHOSPHAMIDE [Suspect]
     Indication: CHRONIC LYMPHOCYTIC LEUKAEMIA
     Dosage: GIVEN ON DAY 1
     Route: 065
  3. FLUDARABINE PHOSPHATE [Suspect]
     Indication: CHRONIC LYMPHOCYTIC LEUKAEMIA
     Dosage: GIVEN ON DAY 1-5
     Route: 065
  4. PENTOSTATIN [Suspect]
     Indication: CHRONIC LYMPHOCYTIC LEUKAEMIA
     Dosage: GIVEN ON DAY 1
     Route: 065

REACTIONS (24)
  - Death [Fatal]
  - Pneumonia [Fatal]
  - Sepsis [Fatal]
  - Neutropenia [Unknown]
  - Leukopenia [Unknown]
  - Thrombocytopenia [Unknown]
  - Febrile neutropenia [Unknown]
  - Pyrexia [Unknown]
  - Infection [Unknown]
  - Urinary tract infection [Unknown]
  - Leukocytosis [Unknown]
  - Anaemia [Unknown]
  - Hypersensitivity [Unknown]
  - Asthenia [Unknown]
  - Confusional state [Unknown]
  - Dehydration [Unknown]
  - Dyspnoea [Unknown]
  - Renal failure [Unknown]
  - Muscular weakness [Unknown]
  - Nausea [Unknown]
  - Pain [Unknown]
  - Rash [Unknown]
  - Vomiting [Unknown]
  - Chills [Unknown]
